FAERS Safety Report 24658547 (Version 1)
Quarter: 2024Q4

REPORT INFORMATION
  Report Type: Spontaneous
  Country: US (occurrence: US)
  Receive Date: 20241125
  Receipt Date: 20241125
  Transmission Date: 20250115
  Serious: Yes (Other)
  Sender: BAYER HEALTHCARE PHARMACEUTICALS INC.
  Company Number: US-BAYER-2024A161601

PATIENT
  Sex: Female

DRUGS (4)
  1. KERENDIA [Suspect]
     Active Substance: FINERENONE
  2. TOUJEO [Suspect]
     Active Substance: INSULIN GLARGINE
  3. MOUNJARO [Suspect]
     Active Substance: TIRZEPATIDE
     Dosage: 7.5 MG
  4. JANUMET XR [Concomitant]
     Active Substance: METFORMIN HYDROCHLORIDE\SITAGLIPTIN PHOSPHATE
     Dosage: UNK
     Dates: end: 202411

REACTIONS (8)
  - Anxiety [None]
  - Haematochezia [None]
  - Diarrhoea [None]
  - Insomnia [None]
  - Asthenia [None]
  - Rectal lesion [None]
  - Dehydration [None]
  - Injury [None]
